FAERS Safety Report 7813057-2 (Version None)
Quarter: 2011Q4

REPORT INFORMATION
  Report Type: 
  Country: None (occurrence: None)
  Receive Date: 20111013
  Receipt Date: 20111003
  Transmission Date: 20120403
  Serious: Yes (Other)
  Sender: FDA-Public Use
  Company Number: PHHY2011JP83915

PATIENT
  Sex: Female

DRUGS (10)
  1. SENNOSIDE [Concomitant]
     Dosage: 12 MG, UNK
     Route: 048
  2. METHYCOBAL [Concomitant]
     Dosage: 2 DF, UNK
     Route: 048
  3. CEROCRAL [Concomitant]
     Route: 048
  4. HALCION [Concomitant]
     Dosage: 0.25 MG, QD
     Route: 048
  5. CARVEDILOL [Concomitant]
     Dosage: 10 MG, UNK
     Route: 048
  6. PRAVASTATIN SODIUM [Concomitant]
     Dosage: 1 DF, UNK
     Route: 048
  7. LANSOPRAZOLE [Concomitant]
     Dosage: 1 DF, UNK
     Route: 048
  8. MAGMITT [Concomitant]
     Dosage: 1000 MG, UNK
     Route: 048
  9. FAMVIR [Suspect]
     Indication: HERPES ZOSTER
     Dosage: 500 MG, QD
     Route: 048
     Dates: start: 20110826, end: 20110826
  10. ALPRAZOLAM [Concomitant]
     Dosage: 1.2 MG, UNK
     Route: 048

REACTIONS (5)
  - PALPITATIONS [None]
  - HEADACHE [None]
  - DYSPNOEA [None]
  - CHEST DISCOMFORT [None]
  - ASTHENIA [None]
